FAERS Safety Report 8142044 (Version 5)
Quarter: 2012Q4

REPORT INFORMATION
  Report Type: Report from Study
  Country: AU (occurrence: AU)
  Receive Date: 20110919
  Receipt Date: 20121217
  Transmission Date: 20130627
  Serious: Yes (Hospitalization, Other)
  Sender: FDA-Public Use
  Company Number: AU-SHIRE-ALL1-2011-02263

PATIENT
  Age: 55 Year
  Sex: Female
  Weight: 134.6 kg

DRUGS (19)
  1. AGALSIDASE ALFA [Suspect]
     Indication: FABRY^S DISEASE
     Dosage: 17.5 mg, 1x/2wks
     Route: 041
     Dates: start: 20100811
  2. ALDACTONE                          /00006201/ [Concomitant]
     Indication: PRODUCT USED FOR UNKNOWN INDICATION
     Dosage: 25 mg, 1x/day:qd
     Route: 048
  3. ARTHRO AID [Concomitant]
     Indication: ARTHRALGIA
     Dosage: 750 mg, 2x/day:bid
     Route: 048
  4. ASTRIX [Concomitant]
     Indication: CARDIOVASCULAR DISORDER
     Dosage: 100 mg, 1x/day:qd
     Route: 048
  5. ATROVENT [Concomitant]
     Indication: ASTHMA
     Dosage: (500 mcg/ml 4x/day), As req^d
     Route: 055
  6. COVERSYL                           /00790702/ [Concomitant]
     Indication: PRODUCT USED FOR UNKNOWN INDICATION
     Dosage: 5 mg, 1x/day:qd
     Route: 048
  7. LASIX                              /00032601/ [Concomitant]
     Indication: PRODUCT USED FOR UNKNOWN INDICATION
     Dosage: 120 mg, 3x/day:tid
     Route: 048
  8. LIPITOR [Concomitant]
     Indication: PRODUCT USED FOR UNKNOWN INDICATION
     Dosage: 40 mg, 1x/day:qd
     Route: 048
  9. MAGMIN [Concomitant]
     Indication: PRODUCT USED FOR UNKNOWN INDICATION
     Dosage: 500 mg, 1x/day:qd
     Route: 048
  10. METOPROLOL [Concomitant]
     Indication: PRODUCT USED FOR UNKNOWN INDICATION
     Dosage: UNK (1/2 of 50 mg in the morning)  mg, 1x/day:qd
     Route: 048
  11. METOPROLOL [Concomitant]
     Dosage: UNK (1/4 50 mg at night) mg, 1x/day:qd
     Route: 065
  12. MOVICOL                            /01625101/ [Concomitant]
     Indication: PRODUCT USED FOR UNKNOWN INDICATION
     Dosage: UNK (13-125 g) g, 2x/day:bid
     Route: 048
  13. NITRO DUR [Concomitant]
     Indication: PRODUCT USED FOR UNKNOWN INDICATION
     Dosage: 10 mg, 1x/day:qd(10mg/24hr patch)
     Route: 062
  14. NITROLINGUAL-PUMPSPRAY [Concomitant]
     Indication: PRODUCT USED FOR UNKNOWN INDICATION
     Dosage: 400 ?g, As req^d
     Route: 048
  15. SOMAC [Concomitant]
     Indication: PRODUCT USED FOR UNKNOWN INDICATION
     Dosage: 40 mg, 1x/day:qd
     Route: 048
  16. SPIRIVA [Concomitant]
     Indication: PRODUCT USED FOR UNKNOWN INDICATION
     Dosage: 18 ?g, 1x/day:qd (in the morning)
     Route: 065
  17. SYMBICORT [Concomitant]
     Indication: PRODUCT USED FOR UNKNOWN INDICATION
     Dosage: 1 DF, 2x/day:bid
     Route: 055
  18. TRAMAL [Concomitant]
     Indication: PRODUCT USED FOR UNKNOWN INDICATION
     Dosage: 50 mg, (1 three times daily) As req^d
     Route: 065
  19. VENTOLIN                           /00139501/ [Concomitant]
     Indication: PRODUCT USED FOR UNKNOWN INDICATION
     Dosage: 1 DF, (1 QID) As req^d
     Route: 055

REACTIONS (2)
  - Atrial fibrillation [Recovered/Resolved with Sequelae]
  - Bradycardia [Recovered/Resolved]
